FAERS Safety Report 21042684 (Version 1)
Quarter: 2022Q3

REPORT INFORMATION
  Report Type: Spontaneous
  Country: US (occurrence: None)
  Receive Date: 20220701
  Receipt Date: 20220701
  Transmission Date: 20221027
  Serious: Yes (Death)
  Sender: FDA-Public Use
  Company Number: None

PATIENT
  Age: 72 Year
  Sex: Male

DRUGS (1)
  1. SIMPONI [Suspect]
     Active Substance: GOLIMUMAB
     Dosage: FREQUENCY : MONTHLY;?
     Route: 058
     Dates: start: 20220210

REACTIONS (3)
  - Hepatic cirrhosis [None]
  - Liver disorder [None]
  - Dementia [None]

NARRATIVE: CASE EVENT DATE: 20220612
